FAERS Safety Report 8359552-1 (Version None)
Quarter: 2012Q2

REPORT INFORMATION
  Report Type: 
  Country: None (occurrence: None)
  Receive Date: 20120515
  Receipt Date: 20120506
  Transmission Date: 20120825
  Serious: Yes (Other)
  Sender: FDA-Public Use
  Company Number: AU-JNJFOC-20120108605

PATIENT
  Sex: Female

DRUGS (6)
  1. PRISTIQ [Concomitant]
     Route: 065
  2. STELARA [Suspect]
     Indication: PSORIASIS
     Route: 058
     Dates: start: 20120105
  3. STELARA [Suspect]
     Route: 058
     Dates: start: 20120425
  4. PREDNISOLONE [Concomitant]
     Route: 065
  5. STELARA [Suspect]
     Route: 058
     Dates: start: 20120201
  6. LABETALOL HCL [Concomitant]
     Route: 065

REACTIONS (2)
  - ARTHRALGIA [None]
  - HEADACHE [None]
